FAERS Safety Report 20862729 (Version 2)
Quarter: 2022Q2

REPORT INFORMATION
  Report Type: Spontaneous
  Country: TR (occurrence: TR)
  Receive Date: 20220523
  Receipt Date: 20220527
  Transmission Date: 20220721
  Serious: Yes (Hospitalization)
  Sender: FDA-Public Use
  Company Number: TR-FERRINGPH-2022FE02442

PATIENT

DRUGS (1)
  1. CHORIONIC GONADOTROPHIN [Suspect]
     Active Substance: CHORIOGONADOTROPIN ALFA
     Indication: Adverse drug reaction
     Dosage: 5000 INTERNATIONAL UNIT, WEEKLY. FOR THE LAST THREE WEEKS.
     Route: 065

REACTIONS (3)
  - Affective disorder [Recovered/Resolved]
  - Catatonia [Recovered/Resolved]
  - Product use in unapproved indication [Recovered/Resolved]
